FAERS Safety Report 8262216-6 (Version None)
Quarter: 2012Q2

REPORT INFORMATION
  Report Type: 
  Country: None (occurrence: None)
  Receive Date: 20120405
  Receipt Date: 20120330
  Transmission Date: 20120825
  Serious: Yes (Hospitalization, Other)
  Sender: FDA-Public Use
  Company Number: US-ASTRAZENECA-2012SE21642

PATIENT
  Age: 53 Year
  Sex: Male
  Weight: 109.3 kg

DRUGS (19)
  1. MOBIC [Concomitant]
     Dosage: WITH  FOOD
     Route: 048
  2. OXYCODONE HCL AND ACETAMINOPHEN [Concomitant]
     Indication: PAIN
     Dosage: 10-325 MG EVERY 6-8 HOURS AS NEEDED
     Route: 048
  3. CIPROFLOXACIN HCL [Concomitant]
     Route: 048
  4. CEPHALEXIN [Concomitant]
     Route: 048
  5. BACTRIM DS [Concomitant]
     Dosage: 800/160 MG, ONE TABLET EVERY 12 HOURS.
     Route: 048
  6. NEXIUM [Suspect]
     Route: 048
  7. TRAMADOL HCL [Concomitant]
     Dosage: AS NEEDED
     Route: 048
  8. CARDIZEM LA [Concomitant]
     Route: 048
  9. RANITIDINE [Concomitant]
     Route: 048
  10. NOVOLOG MIX 70/30 [Concomitant]
     Dosage: 70-30 100 U/ML. INJECT 35 UNITS IN AM AND 25 UNITS IN PM
     Route: 058
  11. HYDROCHLOROTHIAZIDE [Concomitant]
     Route: 048
  12. NIASPAN EXTENDED RELEASE [Concomitant]
     Route: 048
  13. PRAVASTATIN [Concomitant]
     Route: 048
  14. DICYCLOMINE [Concomitant]
     Route: 048
  15. PRANDIN [Concomitant]
     Dosage: 15 - 30 MINUTES BEFORE MEALS
     Route: 048
  16. NYSTATIN-TRIAMCINOLONE [Concomitant]
     Dosage: 100,000 U/G, 0.1 %, TWO TIMES EVERY DAY, MORNING AND EVENING
     Route: 061
  17. KLOR-CON [Concomitant]
     Dosage: WITH FOOD
     Route: 048
  18. DOXYCYCLINE HYCLATE [Concomitant]
     Route: 048
  19. ASPIRIN [Concomitant]
     Route: 048

REACTIONS (12)
  - CELLULITIS [None]
  - HYPOAESTHESIA [None]
  - MUSCULOSKELETAL PAIN [None]
  - NODULE [None]
  - ABSCESS LIMB [None]
  - ARTHRALGIA [None]
  - INTENTIONAL DRUG MISUSE [None]
  - DIABETES MELLITUS [None]
  - HYPERTENSION [None]
  - GASTROOESOPHAGEAL REFLUX DISEASE [None]
  - PAIN [None]
  - ARTHRITIS [None]
